FAERS Safety Report 13795006 (Version 1)
Quarter: 2017Q3

REPORT INFORMATION
  Report Type: Spontaneous
  Country: IN (occurrence: IN)
  Receive Date: 20170726
  Receipt Date: 20170726
  Transmission Date: 20171127
  Serious: Yes (Other)
  Sender: FDA-Public Use
  Company Number: IN-UNICHEM LABORATORIES LIMITED-UCM201707-000188

PATIENT
  Age: 50 Year
  Sex: Male

DRUGS (2)
  1. DONEPEZIL. [Suspect]
     Active Substance: DONEPEZIL
     Indication: DEMENTIA
  2. MEMANTINE HCL TABLETS [Suspect]
     Active Substance: MEMANTINE HYDROCHLORIDE
     Indication: DEMENTIA

REACTIONS (9)
  - Hyponatraemia [Recovered/Resolved]
  - Hyponatraemic seizure [Recovered/Resolved]
  - Depressed level of consciousness [None]
  - Agitation [None]
  - Abnormal behaviour [None]
  - Dyspnoea [None]
  - Generalised tonic-clonic seizure [None]
  - Inappropriate antidiuretic hormone secretion [Unknown]
  - Oxygen saturation decreased [None]
